FAERS Safety Report 6142927-9 (Version None)
Quarter: 2009Q2

REPORT INFORMATION
  Report Type: 
  Country: None (occurrence: None)
  Receive Date: 20090401
  Receipt Date: 20090317
  Transmission Date: 20091009
  Serious: Yes (Hospitalization)
  Sender: FDA-Public Use
  Company Number: 2009PV037819

PATIENT
  Age: 82 Year
  Sex: Male

DRUGS (6)
  1. SYMLIN [Suspect]
     Indication: TYPE 2 DIABETES MELLITUS
     Dosage: 60 MCG;TID;SC
     Route: 058
     Dates: start: 20060301
  2. HUMULIN R [Concomitant]
  3. HUMALOG [Concomitant]
  4. TOPROL-XL [Concomitant]
  5. ZOCOR [Concomitant]
  6. SYNTHROID [Concomitant]

REACTIONS (4)
  - BLINDNESS TRAUMATIC [None]
  - EYE INJURY [None]
  - FALL [None]
  - RETINAL INJURY [None]
